FAERS Safety Report 14663250 (Version 1)
Quarter: 2018Q1

REPORT INFORMATION
  Report Type: Spontaneous
  Country: ES (occurrence: ES)
  Receive Date: 20180321
  Receipt Date: 20180321
  Transmission Date: 20180509
  Serious: Yes (Other)
  Sender: FDA-Public Use
  Company Number: ES-CANTON LABORATORIES, LLC-2044208

PATIENT
  Age: 77 Year
  Sex: Female
  Weight: 71.2 kg

DRUGS (2)
  1. SIMPONI [Suspect]
     Active Substance: GOLIMUMAB
     Route: 058
     Dates: start: 20131003
  2. NAPROSYN [Suspect]
     Active Substance: NAPROXEN
     Indication: ANTIINFLAMMATORY THERAPY
     Route: 065
     Dates: end: 20170924

REACTIONS (4)
  - Humerus fracture [Unknown]
  - Iron deficiency anaemia [Unknown]
  - Helicobacter gastritis [Recovered/Resolved]
  - Fall [Unknown]

NARRATIVE: CASE EVENT DATE: 20171001
